FAERS Safety Report 5875940-7 (Version None)
Quarter: 2008Q3

REPORT INFORMATION
  Report Type: 
  Country: None (occurrence: None)
  Receive Date: 20080910
  Receipt Date: 20080829
  Transmission Date: 20090109
  Serious: Yes (Hospitalization)
  Sender: FDA-Public Use
  Company Number: GB-WYE-H05790408

PATIENT
  Age: 15 Month
  Sex: Female

DRUGS (3)
  1. IBUPROFEN [Suspect]
     Indication: PYREXIA
     Dosage: 5 MG/KG, FREQUENCY UNKNOWN
     Route: 065
  2. CEFUROXIME [Concomitant]
     Indication: PNEUMONIA
     Dosage: UNKNOWN
     Route: 042
  3. ACETAMINOPHEN [Interacting]
     Indication: PYREXIA
     Dosage: 15MG/KG, FREQUENCY UNKNOWN
     Route: 065

REACTIONS (2)
  - DRUG INTERACTION [None]
  - HYPOTHERMIA [None]
